FAERS Safety Report 18494809 (Version 1)
Quarter: 2020Q4

REPORT INFORMATION
  Report Type: Other
  Country: GB (occurrence: GB)
  Receive Date: 20201112
  Receipt Date: 20201112
  Transmission Date: 20210114
  Serious: Yes (Death, Other)
  Sender: FDA-Public Use
  Company Number: GB-EMCURE PHARMACEUTICALS LTD-2020-EPL-001810

PATIENT
  Age: 62 Year
  Sex: Female

DRUGS (8)
  1. CARBOCISTEINE [Concomitant]
     Active Substance: CARBOCYSTEINE
  2. PREDNISOLONE. [Concomitant]
     Active Substance: PREDNISOLONE
  3. NAPROXEN. [Concomitant]
     Active Substance: NAPROXEN
  4. FUROSEMIDE. [Concomitant]
     Active Substance: FUROSEMIDE
  5. SPIOLTO RESPIMAT [Concomitant]
     Active Substance: OLODATEROL HYDROCHLORIDE\TIOTROPIUM BROMIDE MONOHYDRATE
  6. SALBUTAMOL [Concomitant]
     Active Substance: ALBUTEROL
  7. COTRIMOXAZOLE [Suspect]
     Active Substance: SULFAMETHOXAZOLE\TRIMETHOPRIM
     Indication: PROPHYLAXIS
     Dosage: 480 MILLIGRAM DAILY
     Route: 048
     Dates: start: 20200911, end: 20200928
  8. GENERICS UK OMEPRAZOLE [Concomitant]

REACTIONS (3)
  - Hepatotoxicity [Fatal]
  - Neutropenia [Fatal]
  - Dyspnoea [Unknown]

NARRATIVE: CASE EVENT DATE: 20200929
